FAERS Safety Report 23422143 (Version 1)
Quarter: 2024Q1

REPORT INFORMATION
  Report Type: Spontaneous
  Country: US (occurrence: None)
  Receive Date: 20240118
  Receipt Date: 20240118
  Transmission Date: 20240410
  Serious: Yes (Other)
  Sender: FDA-Public Use
  Company Number: None

PATIENT
  Age: 82 Year
  Sex: Male

DRUGS (1)
  1. TEMOZOLOMIDE [Suspect]
     Active Substance: TEMOZOLOMIDE
     Indication: Pancreatic carcinoma
     Dosage: 300MG QD IN THE EVENING ON DAYS 10- 14 OF 28 DAYS

REACTIONS (3)
  - Drug ineffective [None]
  - Disease progression [None]
  - Metastases to lung [None]
